FAERS Safety Report 6596386-2 (Version None)
Quarter: 2010Q1

REPORT INFORMATION
  Report Type: 
  Country: None (occurrence: None)
  Receive Date: 20100204
  Receipt Date: 20091201
  Transmission Date: 20100710
  Serious: No
  Sender: FDA-Public Use
  Company Number: 2009-10381

PATIENT
  Age: 76 Year
  Sex: Male

DRUGS (1)
  1. RAPAFLO [Suspect]
     Indication: PROSTATOMEGALY
     Dosage: 1 CAPSUL, DAILY, ORAL
     Route: 048
     Dates: start: 20091121

REACTIONS (1)
  - RETROGRADE EJACULATION [None]
